FAERS Safety Report 7631061-4 (Version None)
Quarter: 2011Q3

REPORT INFORMATION
  Report Type: 
  Country: None (occurrence: None)
  Receive Date: 20110715
  Receipt Date: 20110713
  Transmission Date: 20111222
  Serious: Yes (Hospitalization)
  Sender: FDA-Public Use
  Company Number: 2011SP006502

PATIENT
  Age: 79 Year
  Sex: Male
  Weight: 69.3 kg

DRUGS (16)
  1. PROPOFOL [Suspect]
     Indication: PRODUCT USED FOR UNKNOWN INDICATION
     Dosage: 2750 MG;INDRP
     Route: 041
     Dates: start: 20110202, end: 20110202
  2. ULTIVA [Concomitant]
  3. PENFILL R [Concomitant]
  4. HANP [Concomitant]
  5. FAMOTIDINE [Concomitant]
  6. MILRILA [Concomitant]
  7. DOPAMINE HCL [Concomitant]
  8. METHYLPREDNISOLONE SODIUM SUCCINATE [Concomitant]
  9. HEPARIN [Concomitant]
  10. SEVOFLURANE [Suspect]
     Indication: PRODUCT USED FOR UNKNOWN INDICATION
     Dosage: INH
     Route: 055
     Dates: start: 20110201, end: 20110202
  11. LASIX [Concomitant]
  12. MIDAZOLAM HCL [Concomitant]
  13. DOBUPUM [Concomitant]
  14. ROCURONIUM BROMIDE [Suspect]
     Indication: PRODUCT USED FOR UNKNOWN INDICATION
     Dosage: 250 MG; INDRP
     Route: 041
     Dates: start: 20110202, end: 20110202
  15. FENTANYL [Concomitant]
  16. ATROPINE [Concomitant]

REACTIONS (12)
  - ANAEMIA [None]
  - CARDIAC ARREST [None]
  - MULTI-ORGAN FAILURE [None]
  - RHABDOMYOLYSIS [None]
  - CONTINUOUS HAEMODIAFILTRATION [None]
  - RENAL FAILURE [None]
  - CARDIO-RESPIRATORY ARREST [None]
  - DYSURIA [None]
  - BRAIN DEATH [None]
  - AORTIC VALVE PROLAPSE [None]
  - MELAENA [None]
  - PLATELET COUNT DECREASED [None]
